FAERS Safety Report 18991833 (Version 1)
Quarter: 2021Q1

REPORT INFORMATION
  Report Type: Spontaneous
  Country: US (occurrence: US)
  Receive Date: 20210310
  Receipt Date: 20210310
  Transmission Date: 20210420
  Serious: No
  Sender: FDA-Public Use
  Company Number: US-PERRIGO-21US001688

PATIENT
  Sex: Female
  Weight: 74.83 kg

DRUGS (6)
  1. ALBUTEROL SULFATE. [Suspect]
     Active Substance: ALBUTEROL SULFATE
     Indication: CHRONIC OBSTRUCTIVE PULMONARY DISEASE
     Dosage: 180 MCG, PRN
     Route: 055
     Dates: start: 202008, end: 2020
  2. ALBUTEROL SULFATE. [Suspect]
     Active Substance: ALBUTEROL SULFATE
     Dosage: 180 MCG, PRN
     Route: 055
     Dates: start: 2020, end: 2021
  3. ALBUTEROL SULFATE. [Suspect]
     Active Substance: ALBUTEROL SULFATE
     Dosage: UNK
     Route: 045
     Dates: start: 2021, end: 2021
  4. ALBUTEROL SULFATE. [Suspect]
     Active Substance: ALBUTEROL SULFATE
     Dosage: 180 MCG, PRN
     Route: 055
     Dates: start: 2020, end: 2020
  5. ALBUTEROL SULFATE. [Suspect]
     Active Substance: ALBUTEROL SULFATE
     Dosage: UNK
     Route: 045
     Dates: start: 2020, end: 2020
  6. ALBUTEROL SULFATE. [Suspect]
     Active Substance: ALBUTEROL SULFATE
     Dosage: UNK
     Route: 045
     Dates: start: 2020, end: 2020

REACTIONS (3)
  - Device delivery system issue [Recovered/Resolved]
  - Cough [Recovered/Resolved]
  - Accidental exposure to product [Recovered/Resolved]

NARRATIVE: CASE EVENT DATE: 2020
